FAERS Safety Report 4316773-2 (Version None)
Quarter: 2004Q1

REPORT INFORMATION
  Report Type: 
  Country: None (occurrence: None)
  Receive Date: 20040311
  Receipt Date: 20040226
  Transmission Date: 20041129
  Serious: Yes (Hospitalization, Other)
  Sender: FDA-Public Use
  Company Number: 2004013249

PATIENT
  Age: 92 Year
  Sex: Female

DRUGS (3)
  1. ZOLOFT [Suspect]
     Indication: DEPRESSION
     Dosage: ORAL
     Route: 048
  2. UNKNOWN HEART MEDICATION [Concomitant]
  3. ESOMEPRAZOLE (ESOMEPRAZOLE) [Concomitant]

REACTIONS (4)
  - ANOREXIA [None]
  - FALL [None]
  - OPEN FRACTURE [None]
  - WEIGHT DECREASED [None]
